FAERS Safety Report 19013538 (Version 1)
Quarter: 2021Q1

REPORT INFORMATION
  Report Type: Spontaneous
  Country: US (occurrence: US)
  Receive Date: 20210315
  Receipt Date: 20210315
  Transmission Date: 20210420
  Serious: Yes (Death)
  Sender: FDA-Public Use
  Company Number: US-TEVA-2021-US-1889968

PATIENT
  Age: 85 Year
  Sex: Female

DRUGS (10)
  1. RALOXIFENE. [Concomitant]
     Active Substance: RALOXIFENE
  2. COPAXONE [Suspect]
     Active Substance: GLATIRAMER ACETATE
     Indication: MULTIPLE SCLEROSIS
     Dosage: 20 MILLIGRAM DAILY;
     Route: 058
     Dates: start: 20210201
  3. TRAMADOL. [Concomitant]
     Active Substance: TRAMADOL
  4. METOPROLOL. [Concomitant]
     Active Substance: METOPROLOL
  5. TOLTERODINE [Concomitant]
     Active Substance: TOLTERODINE
  6. FUROSEMIDE. [Concomitant]
     Active Substance: FUROSEMIDE
  7. LEVOTHYROXINE. [Concomitant]
     Active Substance: LEVOTHYROXINE
  8. ATORVASTATIN [Concomitant]
     Active Substance: ATORVASTATIN
  9. SOTALOL. [Concomitant]
     Active Substance: SOTALOL
  10. QUINAPRIL. [Concomitant]
     Active Substance: QUINAPRIL

REACTIONS (1)
  - Death [Fatal]

NARRATIVE: CASE EVENT DATE: 20210303
